FAERS Safety Report 7483878-7 (Version None)
Quarter: 2011Q2

REPORT INFORMATION
  Report Type: 
  Country: None (occurrence: None)
  Receive Date: 20110517
  Receipt Date: 20110513
  Transmission Date: 20111010
  Serious: Yes (Death, Other)
  Sender: FDA-Public Use
  Company Number: PHHY2011BR41201

PATIENT
  Sex: Female
  Weight: 75 kg

DRUGS (1)
  1. DIOVAN HCT [Suspect]
     Indication: HYPERTENSION
     Dosage: 1 DF, TID (160 MG VALSARTAN/ 12.5 MG HYDROCHLOROTHIAZIDE)
     Route: 048

REACTIONS (4)
  - INFECTION [None]
  - OVARIAN CANCER [None]
  - BLADDER CANCER [None]
  - RENAL DISORDER [None]
